FAERS Safety Report 9522405 (Version 1)
Quarter: 2013Q3

REPORT INFORMATION
  Report Type: Spontaneous
  Country: US (occurrence: None)
  Receive Date: 20130911
  Receipt Date: 20130911
  Transmission Date: 20140515
  Serious: No
  Sender: FDA-Public Use
  Company Number: AEUSA201300136

PATIENT
  Age: 55 Year
  Sex: Female
  Weight: 52.16 kg

DRUGS (5)
  1. GAMUNEX-C (10 PCT) [Suspect]
     Indication: IMMUNODEFICIENCY
     Route: 042
     Dates: start: 201210, end: 20130318
  2. PARACETAMOL [Concomitant]
  3. BENADRYL [Concomitant]
  4. VITAMIN C [Concomitant]
  5. VITAMIN D3 [Concomitant]

REACTIONS (4)
  - Infusion related reaction [None]
  - Nausea [None]
  - Chills [None]
  - Flushing [None]
